FAERS Safety Report 4322063-4 (Version None)
Quarter: 2004Q1

REPORT INFORMATION
  Report Type: 
  Country: None (occurrence: None)
  Receive Date: 20040319
  Receipt Date: 20040314
  Transmission Date: 20041129
  Serious: Yes (Other)
  Sender: FDA-Public Use
  Company Number: ENT 2004-0053 (0)

PATIENT
  Age: 59 Year
  Sex: Male

DRUGS (4)
  1. COMTAN [Suspect]
  2. SINEMET [Concomitant]
  3. AMANTADINE HCL [Concomitant]
  4. MIRAPEX [Concomitant]

REACTIONS (1)
  - SPEECH DISORDER [None]
